FAERS Safety Report 9983295 (Version 1)
Quarter: 2014Q1

REPORT INFORMATION
  Report Type: Report from Study
  Country: US (occurrence: US)
  Receive Date: 20140307
  Receipt Date: 20140307
  Transmission Date: 20141002
  Serious: No
  Sender: FDA-Public Use
  Company Number: PHEH2014US004456

PATIENT
  Age: 91 Year
  Sex: Male

DRUGS (9)
  1. TASIGNA [Suspect]
     Dosage: 150 MG, BID
     Route: 048
  2. SEROQUEL [Concomitant]
  3. OMEPRAZOLE [Concomitant]
  4. QUINAPRIL [Concomitant]
  5. LORAZEPAM [Concomitant]
  6. ALPRAZOLAM [Concomitant]
  7. BISOPROL [Concomitant]
  8. AMLODIPINE [Concomitant]
  9. BYSTOLIC [Concomitant]

REACTIONS (2)
  - Dizziness [Unknown]
  - Malaise [Unknown]
